FAERS Safety Report 4506079-0 (Version None)
Quarter: 2004Q4

REPORT INFORMATION
  Report Type: 
  Country: None (occurrence: None)
  Receive Date: 20041025
  Receipt Date: 20040507
  Transmission Date: 20050328
  Serious: Yes (Hospitalization)
  Sender: FDA-Public Use
  Company Number: US-JNJFOC-20040501624

PATIENT
  Age: 76 Year
  Sex: Female
  Weight: 90.7194 kg

DRUGS (10)
  1. INFLIXIMAB (INFLIXIMAB, RECOMBINANT) LYOPHILIZED POWDER [Suspect]
     Indication: RHEUMATOID ARTHRITIS
     Dosage: INTRAVENOUS
     Route: 042
     Dates: start: 20010412
  2. METHOTREXATE [Concomitant]
  3. METOPROLOL TARTRATE [Concomitant]
  4. LOTENSIN [Concomitant]
  5. CHLORTHALIDONE [Concomitant]
  6. ADALAT [Concomitant]
  7. HUMULIN 70/30 INSULIN (HUMAN MIXTARD) [Concomitant]
  8. FOLIC ACID [Concomitant]
  9. PRILOSEC [Concomitant]
  10. LODINE [Concomitant]

REACTIONS (1)
  - HEART RATE IRREGULAR [None]
